FAERS Safety Report 24033711 (Version 1)
Quarter: 2024Q3

REPORT INFORMATION
  Report Type: Spontaneous
  Country: US (occurrence: US)
  Receive Date: 20240701
  Receipt Date: 20240701
  Transmission Date: 20241017
  Serious: Yes (Other)
  Sender: AMGEN
  Company Number: US-AMGEN-USASP2024128052

PATIENT

DRUGS (2)
  1. ADALIMUMAB [Suspect]
     Active Substance: ADALIMUMAB\ISOPROPYL ALCOHOL
     Indication: Iridocyclitis
     Dosage: UNK
     Route: 065
  2. PREDNISONE [Suspect]
     Active Substance: PREDNISONE
     Indication: Iridocyclitis
     Dosage: UNK
     Route: 048

REACTIONS (4)
  - Retinal vascular disorder [Unknown]
  - Cystoid macular oedema [Unknown]
  - Optic disc disorder [Unknown]
  - Pseudopapilloedema [Unknown]
